FAERS Safety Report 7082755-3 (Version None)
Quarter: 2010Q4

REPORT INFORMATION
  Report Type: 
  Country: None (occurrence: None)
  Receive Date: 20101104
  Receipt Date: 20101102
  Transmission Date: 20110411
  Serious: Yes (Hospitalization, Other)
  Sender: FDA-Public Use
  Company Number: US-BRISTOL-MYERS SQUIBB COMPANY-15363526

PATIENT
  Age: 8 Year
  Sex: Female
  Weight: 17 kg

DRUGS (5)
  1. ABILIFY [Suspect]
  2. RITALIN [Suspect]
  3. SEROQUEL [Concomitant]
  4. CONCERTA [Concomitant]
  5. CLONIDINE [Concomitant]

REACTIONS (3)
  - ACCIDENTAL DRUG INTAKE BY CHILD [None]
  - COMA [None]
  - DYSTONIA [None]
